FAERS Safety Report 9473737 (Version 1)
Quarter: 2013Q3

REPORT INFORMATION
  Report Type: Spontaneous
  Country: US (occurrence: US)
  Receive Date: 20130823
  Receipt Date: 20130823
  Transmission Date: 20140515
  Serious: Yes (Other)
  Sender: FDA-Public Use
  Company Number: US-BRISTOL-MYERS SQUIBB COMPANY-16945768

PATIENT
  Age: 68 Year
  Sex: Female

DRUGS (2)
  1. SPRYCEL [Suspect]
     Indication: LEUKAEMIA
  2. CYMBALTA [Concomitant]

REACTIONS (1)
  - Depression [Unknown]
